FAERS Safety Report 16001262 (Version 1)
Quarter: 2019Q1

REPORT INFORMATION
  Report Type: Spontaneous
  Country: US (occurrence: US)
  Receive Date: 20190225
  Receipt Date: 20190225
  Transmission Date: 20190418
  Serious: No
  Sender: FDA-Public Use
  Company Number: US-AMNEAL PHARMACEUTICALS-2018AMN00934

PATIENT

DRUGS (2)
  1. SULFAMETHOXAZOLE AND TRIMETHOPRIM [Suspect]
     Active Substance: SULFAMETHOXAZOLE\TRIMETHOPRIM
     Dosage: 1 TABLETS, 2X/DAY
     Route: 048
     Dates: start: 20181112, end: 20181113
  2. SULFAMETHOXAZOLE AND TRIMETHOPRIM [Suspect]
     Active Substance: SULFAMETHOXAZOLE\TRIMETHOPRIM
     Indication: URINARY TRACT INFECTION
     Dosage: 1 TABLETS, 2X/DAY
     Route: 048
     Dates: start: 20181029, end: 20181031

REACTIONS (2)
  - Gingival ulceration [Not Recovered/Not Resolved]
  - Gingival blister [Not Recovered/Not Resolved]

NARRATIVE: CASE EVENT DATE: 2018
